FAERS Safety Report 13397896 (Version 2)
Quarter: 2018Q4

REPORT INFORMATION
  Report Type: Spontaneous
  Country: JP (occurrence: JP)
  Receive Date: 20170403
  Receipt Date: 20181031
  Transmission Date: 20190204
  Serious: Yes (Death, Hospitalization, Other)
  Sender: FDA-Public Use
  Company Number: JP-ASTRAZENECA-2017SE34357

PATIENT
  Age: 27921 Day
  Sex: Female
  Weight: 30 kg

DRUGS (3)
  1. RHEUMATREX [Suspect]
     Active Substance: METHOTREXATE SODIUM
     Indication: RHEUMATOID ARTHRITIS
     Route: 048
     Dates: end: 20160726
  2. MEROPEN [Suspect]
     Active Substance: MEROPENEM
     Indication: SEPTIC SHOCK
     Route: 041
     Dates: start: 20160726, end: 20160801
  3. DOPASTON [Concomitant]
     Active Substance: LEVODOPA
     Indication: PARKINSON^S DISEASE
     Route: 042
     Dates: start: 20160726, end: 20160813

REACTIONS (5)
  - Septic shock [Fatal]
  - Uterine rupture [Fatal]
  - Decreased immune responsiveness [Fatal]
  - Cytopenia [Fatal]
  - Pyometra [Fatal]

NARRATIVE: CASE EVENT DATE: 20160718
